FAERS Safety Report 9660655 (Version 1)
Quarter: 2013Q4

REPORT INFORMATION
  Report Type: Spontaneous
  Country: US (occurrence: US)
  Receive Date: 20131031
  Receipt Date: 20131031
  Transmission Date: 20140711
  Serious: No
  Sender: FDA-Public Use
  Company Number: US-PFIZER INC-2013309098

PATIENT
  Age: 49 Year
  Sex: Female

DRUGS (1)
  1. ADVIL [Suspect]
     Indication: HEADACHE
     Dosage: 400 MG (TWO 200MG ^FILM COATED TABLET^), AS NEEDED
     Route: 048
     Dates: start: 201309, end: 201310

REACTIONS (4)
  - Dysphagia [Unknown]
  - Foreign body [Unknown]
  - Sensation of foreign body [Unknown]
  - Dyspepsia [Unknown]
